FAERS Safety Report 10633268 (Version 1)
Quarter: 2014Q4

REPORT INFORMATION
  Report Type: Spontaneous
  Country: US (occurrence: US)
  Receive Date: 20141205
  Receipt Date: 20141205
  Transmission Date: 20150529
  Serious: No
  Sender: FDA-Public Use
  Company Number: US-BRISTOL-MYERS SQUIBB COMPANY-21517024

PATIENT
  Age: 75 Year
  Sex: Female
  Weight: 41.72 kg

DRUGS (12)
  1. ELIQUIS [Suspect]
     Active Substance: APIXABAN
     Indication: CEREBROVASCULAR ACCIDENT PROPHYLAXIS
  2. CLOPIDOGREL BISULFATE. [Suspect]
     Active Substance: CLOPIDOGREL BISULFATE
     Indication: CEREBROVASCULAR ACCIDENT
     Dates: start: 2014
  3. METOPROLOL [Concomitant]
     Active Substance: METOPROLOL
  4. PREDNISONE. [Concomitant]
     Active Substance: PREDNISONE
  5. ATORVASTATIN [Concomitant]
     Active Substance: ATORVASTATIN
  6. OMEPRAZOLE. [Concomitant]
     Active Substance: OMEPRAZOLE
  7. TOPROL XL [Concomitant]
     Active Substance: METOPROLOL SUCCINATE
  8. WELLBUTRIN [Concomitant]
     Active Substance: BUPROPION HYDROCHLORIDE
  9. BUMETANIDE. [Concomitant]
     Active Substance: BUMETANIDE
  10. CLORAZEPATE [Concomitant]
     Active Substance: CLORAZEPATE DIPOTASSIUM
  11. FERROUS SULFATE [Concomitant]
     Active Substance: FERROUS SULFATE\FERROUS SULFATE, DRIED
  12. KLOR-CON [Concomitant]
     Active Substance: POTASSIUM CHLORIDE

REACTIONS (2)
  - Generalised erythema [Unknown]
  - Haematuria [Unknown]
